FAERS Safety Report 24675194 (Version 1)
Quarter: 2024Q4

REPORT INFORMATION
  Report Type: Spontaneous
  Country: US (occurrence: US)
  Receive Date: 20241128
  Receipt Date: 20241128
  Transmission Date: 20250115
  Serious: Yes (Other)
  Sender: SANOFI AVENTIS
  Company Number: US-SA-2024SA348535

PATIENT
  Sex: Female

DRUGS (1)
  1. DUPIXENT [Suspect]
     Active Substance: DUPILUMAB
     Indication: Asthma
     Dosage: 300 MG, QOW
     Route: 058
     Dates: start: 202407

REACTIONS (5)
  - Aspiration [Unknown]
  - Oesophageal stenosis [Unknown]
  - Oesophagitis [Unknown]
  - Influenza [Unknown]
  - Asthma [Unknown]

NARRATIVE: CASE EVENT DATE: 20240101
